FAERS Safety Report 9325500 (Version 1)
Quarter: 2013Q2

REPORT INFORMATION
  Report Type: Spontaneous
  Country: US (occurrence: None)
  Receive Date: 20130528
  Receipt Date: 20130528
  Transmission Date: 20140414
  Serious: Yes (Other)
  Sender: FDA-Public Use
  Company Number: 2013P1005311

PATIENT
  Age: 49 Year
  Sex: Female
  Weight: 86.18 kg

DRUGS (5)
  1. PLAQUENIL [Suspect]
     Indication: RHEUMATOID ARTHRITIS
     Dates: end: 20130429
  2. ASPIRN [Concomitant]
  3. CYMBALTA [Concomitant]
  4. JANUMET [Concomitant]
  5. NORCO [Concomitant]

REACTIONS (7)
  - Weight decreased [None]
  - Gallbladder perforation [None]
  - Hepatic steatosis [None]
  - Adrenal insufficiency [None]
  - Biliary colic [None]
  - Cholelithiasis [None]
  - Cholecystitis infective [None]
